FAERS Safety Report 8573760-6 (Version None)
Quarter: 2012Q3

REPORT INFORMATION
  Report Type: 
  Country: None (occurrence: None)
  Receive Date: 20120806
  Receipt Date: 20120730
  Transmission Date: 20120928
  Serious: Yes (Other)
  Sender: FDA-Public Use
  Company Number: AT-GLAXOSMITHKLINE-B0811166A

PATIENT
  Age: 7 Year
  Sex: Female

DRUGS (1)
  1. FLUTICASONE PROPIONATE/SALMETEROL [Suspect]
     Indication: ASTHMA
     Route: 055

REACTIONS (8)
  - ASTHMA [None]
  - LACRIMATION INCREASED [None]
  - CONJUNCTIVITIS [None]
  - DRUG INEFFECTIVE [None]
  - RHINITIS ALLERGIC [None]
  - SWELLING FACE [None]
  - COUGH [None]
  - PRODUCT QUALITY ISSUE [None]
